FAERS Safety Report 8911289 (Version 2)
Quarter: 2013Q4

REPORT INFORMATION
  Report Type: Spontaneous
  Country: US (occurrence: US)
  Receive Date: 20121116
  Receipt Date: 20131217
  Transmission Date: 20140711
  Serious: No
  Sender: FDA-Public Use
  Company Number: US-GLAXOSMITHKLINE-A0995352A

PATIENT
  Age: 69 Year
  Sex: Male
  Weight: 101.3 kg

DRUGS (10)
  1. VOTRIENT [Suspect]
     Indication: PRODUCT USED FOR UNKNOWN INDICATION
     Dosage: 800MG PER DAY
     Route: 048
     Dates: start: 20120606
  2. CARVEDILOL [Concomitant]
  3. DIGOXIN [Concomitant]
  4. WARFARIN [Concomitant]
  5. NOVOLOG [Concomitant]
  6. LANTUS [Concomitant]
  7. JANUVIA [Concomitant]
  8. DILTIAZEM [Concomitant]
  9. LASIX [Concomitant]
  10. RANITIDINE [Concomitant]

REACTIONS (3)
  - Diarrhoea [Recovering/Resolving]
  - Hair colour changes [Recovering/Resolving]
  - Platelet count decreased [Recovering/Resolving]
